FAERS Safety Report 20861478 (Version 3)
Quarter: 2022Q3

REPORT INFORMATION
  Report Type: Spontaneous
  Country: CA (occurrence: CA)
  Receive Date: 20220523
  Receipt Date: 20220811
  Transmission Date: 20221026
  Serious: Yes (Hospitalization, Disabling, Other)
  Sender: FDA-Public Use
  Company Number: CA-SA-SAC20211217000774

PATIENT
  Age: 44 Year
  Sex: Female

DRUGS (35)
  1. DESOXIMETASONE [Suspect]
     Active Substance: DESOXIMETASONE
     Indication: Product used for unknown indication
  2. DESOXIMETASONE [Suspect]
     Active Substance: DESOXIMETASONE
  3. ARAVA [Suspect]
     Active Substance: LEFLUNOMIDE
  4. ALENDRONATE SODIUM [Suspect]
     Active Substance: ALENDRONATE SODIUM
  5. PREDNISONE [Suspect]
     Active Substance: PREDNISONE
  6. CORTISONE ACETATE [Suspect]
     Active Substance: CORTISONE ACETATE
  7. DICLOFENAC SODIUM [Suspect]
     Active Substance: DICLOFENAC SODIUM
  8. FOLIC ACID [Suspect]
     Active Substance: FOLIC ACID
  9. HYDROCORTISONE ACETATE [Suspect]
     Active Substance: HYDROCORTISONE ACETATE
  10. HYDROXYCHLOROQUINE [Suspect]
     Active Substance: HYDROXYCHLOROQUINE
  11. KEVZARA [Suspect]
     Active Substance: SARILUMAB
  12. METHOTREXATE [Suspect]
     Active Substance: METHOTREXATE
  13. LEFLUNOMIDE [Suspect]
     Active Substance: LEFLUNOMIDE
  14. OXYCODONE [Suspect]
     Active Substance: OXYCODONE
  15. PLAQUENIL [Suspect]
     Active Substance: HYDROXYCHLOROQUINE SULFATE
  16. PSEUDOEPHEDRINE HYDROCHLORIDE [Suspect]
     Active Substance: PSEUDOEPHEDRINE HYDROCHLORIDE
  17. SULFAMETHOXAZOLE\TRIMETHOPRIM [Suspect]
     Active Substance: SULFAMETHOXAZOLE\TRIMETHOPRIM
  18. SULFASALAZINE [Suspect]
     Active Substance: SULFASALAZINE
  19. ACETAMINOPHEN [Suspect]
     Active Substance: ACETAMINOPHEN
  20. ACTEMRA [Suspect]
     Active Substance: TOCILIZUMAB
  21. CETIRIZINE [Suspect]
     Active Substance: CETIRIZINE HYDROCHLORIDE
  22. CIMZIA [Suspect]
     Active Substance: CERTOLIZUMAB PEGOL
  23. ENBREL [Suspect]
     Active Substance: ETANERCEPT
  24. FOSAMAX [Suspect]
     Active Substance: ALENDRONATE SODIUM
  25. HUMIRA [Suspect]
     Active Substance: ADALIMUMAB
  26. ORENCIA [Suspect]
     Active Substance: ABATACEPT
  27. PERIOGARD [Suspect]
     Active Substance: CHLORHEXIDINE GLUCONATE
  28. CETIRIZINE HYDROCHLORIDE\PSEUDOEPHEDRINE HYDROCHLORIDE [Suspect]
     Active Substance: CETIRIZINE HYDROCHLORIDE\PSEUDOEPHEDRINE HYDROCHLORIDE
  29. REMICADE [Suspect]
     Active Substance: INFLIXIMAB
  30. RITUXIMAB [Suspect]
     Active Substance: RITUXIMAB
  31. SIMPONI [Suspect]
     Active Substance: GOLIMUMAB
  32. STELARA [Suspect]
     Active Substance: USTEKINUMAB
  33. XELJANZ [Suspect]
     Active Substance: TOFACITINIB CITRATE
  34. PHTHALYLSULFATHIAZOLE [Suspect]
     Active Substance: PHTHALYLSULFATHIAZOLE
  35. CHLORHEXIDINE [Suspect]
     Active Substance: CHLORHEXIDINE

REACTIONS (36)
  - Abdominal discomfort [Unknown]
  - Drug intolerance [Unknown]
  - Duodenal ulcer perforation [Unknown]
  - Dyspnoea [Unknown]
  - Fatigue [Unknown]
  - Folliculitis [Unknown]
  - Gait inability [Unknown]
  - Gastrointestinal disorder [Unknown]
  - Glossodynia [Unknown]
  - Helicobacter infection [Unknown]
  - Hepatic enzyme increased [Unknown]
  - Impaired healing [Unknown]
  - Infection [Unknown]
  - Infusion related reaction [Unknown]
  - Irritable bowel syndrome [Unknown]
  - Lower respiratory tract infection [Unknown]
  - Musculoskeletal stiffness [Unknown]
  - Nasopharyngitis [Unknown]
  - Pemphigus [Unknown]
  - Pericarditis [Unknown]
  - Peripheral swelling [Unknown]
  - Pruritus [Unknown]
  - Pyrexia [Unknown]
  - Rash [Unknown]
  - Rheumatoid arthritis [Unknown]
  - Road traffic accident [Unknown]
  - Sinusitis [Unknown]
  - Sleep disorder [Unknown]
  - Insomnia [Unknown]
  - Stomatitis [Unknown]
  - Swelling [Unknown]
  - Synovitis [Unknown]
  - Systemic lupus erythematosus [Unknown]
  - Treatment failure [Unknown]
  - Urticaria [Unknown]
  - Weight increased [Unknown]
